FAERS Safety Report 6894679-2 (Version None)
Quarter: 2010Q3

REPORT INFORMATION
  Report Type: 
  Country: None (occurrence: None)
  Receive Date: 20100802
  Receipt Date: 20100727
  Transmission Date: 20110219
  Serious: Yes (Other)
  Sender: FDA-Public Use
  Company Number: US-BRISTOL-MYERS SQUIBB COMPANY-15218183

PATIENT
  Age: 1 Day
  Sex: Female

DRUGS (2)
  1. ABILIFY [Suspect]
     Route: 064
     Dates: start: 20090717, end: 20100226
  2. TRILEPTAL [Suspect]
     Route: 064
     Dates: start: 20090717, end: 20100226

REACTIONS (1)
  - PREMATURE BABY [None]
